FAERS Safety Report 4590507-9 (Version None)
Quarter: 2005Q1

REPORT INFORMATION
  Report Type: 
  Country: None (occurrence: None)
  Receive Date: 20050217
  Receipt Date: 20050203
  Transmission Date: 20050727
  Serious: Yes (Other)
  Sender: FDA-Public Use
  Company Number: 2005015994

PATIENT
  Age: 71 Year
  Sex: Female
  Weight: 86.1834 kg

DRUGS (7)
  1. CELEBREX [Suspect]
     Indication: ARTHRALGIA
     Dosage: 200 MG)
     Dates: end: 20041201
  2. TOLTERODINE TARTRATE [Concomitant]
  3. METFORMIN HCL [Concomitant]
  4. LISINOPIRL (LISINOPRIL) [Concomitant]
  5. ATORVASTATIN (ATORVASTATIN) [Concomitant]
  6. PIOGLITAZONE HCL [Concomitant]
  7. EZETIMIBE (EZETIMIBE) [Concomitant]

REACTIONS (10)
  - ABASIA [None]
  - CARDIOMEGALY [None]
  - CHEST PAIN [None]
  - DIABETES MELLITUS [None]
  - FAECAL INCONTINENCE [None]
  - HYPERTENSION [None]
  - HYPOAESTHESIA [None]
  - INSOMNIA [None]
  - PAIN [None]
  - PAIN IN EXTREMITY [None]
